FAERS Safety Report 24893115 (Version 1)
Quarter: 2025Q1

REPORT INFORMATION
  Report Type: Spontaneous
  Country: US (occurrence: US)
  Receive Date: 20250128
  Receipt Date: 20250128
  Transmission Date: 20250409
  Serious: Yes (Other)
  Sender: AMGEN
  Company Number: US-AMGEN-USASP2025012731

PATIENT
  Sex: Female
  Weight: 48.534 kg

DRUGS (3)
  1. EVENITY [Suspect]
     Active Substance: ROMOSOZUMAB-AQQG
     Indication: Osteoporosis
     Dosage: UNK, Q4WK (ONCE A MONTH; EVERY 4 WEEKS)
     Route: 065
     Dates: start: 202501
  2. ACTEMRA [Concomitant]
     Active Substance: TOCILIZUMAB
     Indication: Product used for unknown indication
     Route: 065
  3. METHYLPREDNISOLONE [Concomitant]
     Active Substance: METHYLPREDNISOLONE
     Indication: Product used for unknown indication
     Route: 065

REACTIONS (8)
  - Foreign body in throat [Recovered/Resolved]
  - Injection site pain [Recovered/Resolved]
  - Headache [Not Recovered/Not Resolved]
  - Tinnitus [Not Recovered/Not Resolved]
  - Spinal pain [Unknown]
  - Paraesthesia [Not Recovered/Not Resolved]
  - Vascular pain [Unknown]
  - Joint noise [Unknown]

NARRATIVE: CASE EVENT DATE: 20250101
